FAERS Safety Report 4553302-2 (Version None)
Quarter: 2005Q1

REPORT INFORMATION
  Report Type: 
  Country: None (occurrence: None)
  Receive Date: 20050113
  Receipt Date: 20050104
  Transmission Date: 20050727
  Serious: No
  Sender: FDA-Public Use
  Company Number: 2005-123951-NL

PATIENT
  Age: 40 Year
  Sex: Female

DRUGS (3)
  1. MIRTAZAPINE [Suspect]
     Indication: DEPRESSION
     Dosage: SEE IMAGE
     Route: 048
     Dates: start: 20040212, end: 20041101
  2. MIRTAZAPINE [Suspect]
     Indication: DEPRESSION
     Dosage: SEE IMAGE
     Route: 048
     Dates: start: 20041125
  3. VENLAFAXINE HCL [Concomitant]

REACTIONS (3)
  - ARTHRALGIA [None]
  - JOINT STIFFNESS [None]
  - JOINT SWELLING [None]
